FAERS Safety Report 7337198-1 (Version None)
Quarter: 2011Q1

REPORT INFORMATION
  Report Type: 
  Country: None (occurrence: None)
  Receive Date: 20110308
  Receipt Date: 20110301
  Transmission Date: 20110831
  Serious: Yes (Other)
  Sender: FDA-Public Use
  Company Number: US-PFIZER INC-2011026815

PATIENT
  Age: 30 Year
  Sex: Female

DRUGS (3)
  1. CELEXA [Concomitant]
     Dosage: 20 MG, 1X/DAY
     Route: 048
     Dates: start: 20101230
  2. GEODON [Suspect]
     Indication: BIPOLAR DISORDER
     Dosage: AT BED TIME
     Route: 048
  3. RITALIN - SLOW RELEASE [Concomitant]
     Indication: ATTENTION DEFICIT/HYPERACTIVITY DISORDER
     Dosage: 20 MG, 4X/DAY
     Route: 048
     Dates: start: 20080401

REACTIONS (1)
  - DYSKINESIA [None]
